FAERS Safety Report 18085095 (Version 1)
Quarter: 2020Q3

REPORT INFORMATION
  Report Type: Spontaneous
  Country: US (occurrence: US)
  Receive Date: 20200729
  Receipt Date: 20200729
  Transmission Date: 20201103
  Serious: Yes (Hospitalization, Other)
  Sender: FDA-Public Use
  Company Number: NVSC2020US209350

PATIENT
  Age: 9 Month
  Sex: Female

DRUGS (2)
  1. ZOLGENSMA [Suspect]
     Active Substance: ONASEMNOGENE ABEPARVOVEC-XIOI
     Indication: SPINAL MUSCULAR ATROPHY
     Dosage: UNK
     Route: 065
     Dates: start: 20200604
  2. PREDNISOLONE. [Concomitant]
     Active Substance: PREDNISOLONE
     Indication: PRODUCT USED FOR UNKNOWN INDICATION
     Dosage: 1 MG/KG
     Route: 065

REACTIONS (7)
  - Blood bilirubin increased [Unknown]
  - Rhinovirus infection [Recovered/Resolved]
  - Liver function test increased [Unknown]
  - International normalised ratio increased [Unknown]
  - Aspartate aminotransferase increased [Unknown]
  - Prothrombin time prolonged [Unknown]
  - Alanine aminotransferase increased [Unknown]
